FAERS Safety Report 19003928 (Version 1)
Quarter: 2021Q1

REPORT INFORMATION
  Report Type: Spontaneous
  Country: US (occurrence: US)
  Receive Date: 20210312
  Receipt Date: 20210312
  Transmission Date: 20210420
  Serious: No
  Sender: FDA-Public Use
  Company Number: US-SMITH AND NEPHEW, INC-2020SMT00068

PATIENT
  Age: 75 Year
  Sex: Female
  Weight: 45.35 kg

DRUGS (8)
  1. COLLAGENASE SANTYL [Suspect]
     Active Substance: COLLAGENASE CLOSTRIDIUM HISTOLYTICUM
     Dosage: 2 INCH BEAD, 1X/DAY
     Route: 061
     Dates: start: 20201026, end: 2020
  2. COLLAGENASE SANTYL [Suspect]
     Active Substance: COLLAGENASE CLOSTRIDIUM HISTOLYTICUM
     Indication: DEBRIDEMENT
     Dosage: 2 INCH BEAD, ONCE
     Route: 061
     Dates: start: 20201025, end: 20201025
  3. FUROSEMIDE. [Concomitant]
     Active Substance: FUROSEMIDE
  4. COLLAGENASE SANTYL [Suspect]
     Active Substance: COLLAGENASE CLOSTRIDIUM HISTOLYTICUM
     Indication: WOUND
     Dosage: 2 INCH BEAD, 1X/DAY
     Route: 061
     Dates: start: 2020, end: 20201024
  5. COLLAGENASE SANTYL [Suspect]
     Active Substance: COLLAGENASE CLOSTRIDIUM HISTOLYTICUM
     Dosage: 2 INCH BEAD, 1X/DAY
     Route: 061
     Dates: start: 2020
  6. GENTAMICIN. [Concomitant]
     Active Substance: GENTAMICIN
     Dosage: MIXED WITH SANTYL
     Route: 061
  7. SPIRONOLACTONE. [Concomitant]
     Active Substance: SPIRONOLACTONE
  8. COLLAGENASE SANTYL [Suspect]
     Active Substance: COLLAGENASE CLOSTRIDIUM HISTOLYTICUM
     Dosage: NEW TUBE
     Dates: start: 2020

REACTIONS (2)
  - Skin irritation [Recovered/Resolved]
  - Application site pain [Recovered/Resolved]

NARRATIVE: CASE EVENT DATE: 20201025
